FAERS Safety Report 20612013 (Version 1)
Quarter: 2022Q1

REPORT INFORMATION
  Report Type: Spontaneous
  Country: CN (occurrence: CN)
  Receive Date: 20220318
  Receipt Date: 20220318
  Transmission Date: 20220424
  Serious: Yes (Hospitalization)
  Sender: FDA-Public Use
  Company Number: CN-BAYER-2022A037387

PATIENT
  Age: 47 Year
  Sex: Female

DRUGS (5)
  1. AVELOX [Suspect]
     Active Substance: MOXIFLOXACIN HYDROCHLORIDE
     Indication: Tracheitis
     Dosage: 0.4 G, QD
     Route: 048
     Dates: start: 20220309, end: 20220309
  2. DEXAMETHASONE ACETATE [Concomitant]
     Active Substance: DEXAMETHASONE ACETATE
     Dosage: 1.5 MG, BID
     Route: 048
     Dates: start: 20220309, end: 20220314
  3. KE ZHI [Concomitant]
     Dosage: 2 DF, TID
     Route: 048
     Dates: start: 20220309, end: 20220314
  4. LORATADINE [Concomitant]
     Active Substance: LORATADINE
     Dosage: 10 MG, QD
     Route: 048
     Dates: start: 20220309, end: 20220314
  5. YU PING FENG [Concomitant]
     Dosage: 5 G, BID
     Route: 048
     Dates: start: 20220309

REACTIONS (6)
  - Facial paralysis [Recovering/Resolving]
  - Quadriplegia [Recovering/Resolving]
  - Dizziness [Recovering/Resolving]
  - Tremor [None]
  - Meningioma [None]
  - Off label use [None]

NARRATIVE: CASE EVENT DATE: 20220309
